FAERS Safety Report 5663486-0 (Version None)
Quarter: 2008Q1

REPORT INFORMATION
  Report Type: 
  Country: None (occurrence: None)
  Receive Date: 20080313
  Receipt Date: 20080303
  Transmission Date: 20080703
  Serious: Yes (Hospitalization)
  Sender: FDA-Public Use
  Company Number: IN-BAXTER-2008BH001893

PATIENT
  Age: 14 Year
  Sex: Female
  Weight: 37 kg

DRUGS (3)
  1. HEMOFIL M [Suspect]
     Indication: DRUG USE FOR UNKNOWN INDICATION
     Route: 042
     Dates: start: 20080227, end: 20080227
  2. CIPROFLOXACIN [Concomitant]
     Indication: URINARY TRACT INFECTION
     Route: 048
     Dates: start: 20080228
  3. ALKASOL [Concomitant]
     Indication: URINARY TRACT INFECTION
     Dosage: DOSE UNIT:UNKNOWN
     Route: 048
     Dates: start: 20080228

REACTIONS (1)
  - ANAPHYLACTIC REACTION [None]
